FAERS Safety Report 9390949 (Version 5)
Quarter: 2014Q2

REPORT INFORMATION
  Report Type: Spontaneous
  Country: US (occurrence: US)
  Receive Date: 20130709
  Receipt Date: 20140415
  Transmission Date: 20141212
  Serious: No
  Sender: FDA-Public Use
  Company Number: US-PFIZER INC-2013200418

PATIENT
  Age: 58 Year
  Sex: Male

DRUGS (2)
  1. INLYTA [Suspect]
     Indication: RENAL CANCER
     Dosage: 5 MG, 2X/DAY
     Dates: start: 20121211
  2. INLYTA [Suspect]
     Dosage: 5 MG, 2X/DAY
     Route: 048
     Dates: start: 20121213

REACTIONS (2)
  - Diarrhoea [Unknown]
  - Weight decreased [Unknown]
